FAERS Safety Report 17611968 (Version 1)
Quarter: 2020Q2

REPORT INFORMATION
  Report Type: Spontaneous
  Country: US (occurrence: US)
  Receive Date: 20200401
  Receipt Date: 20200401
  Transmission Date: 20200713
  Serious: Yes (Death, Hospitalization)
  Sender: FDA-Public Use
  Company Number: US-ASTRAZENECA-2020SE44278

PATIENT
  Age: 758 Month
  Sex: Male
  Weight: 102.5 kg

DRUGS (28)
  1. BYDUREON [Suspect]
     Active Substance: EXENATIDE
     Indication: DIABETES MELLITUS
     Dosage: VIAL-TAKE WEEKLY
     Route: 065
     Dates: start: 201208, end: 201501
  2. INVOKANA [Concomitant]
     Active Substance: CANAGLIFLOZIN
     Indication: TYPE 2 DIABETES MELLITUS
  3. ATORVASTATIN [Concomitant]
     Active Substance: ATORVASTATIN
  4. AVAPRO [Concomitant]
     Active Substance: IRBESARTAN
  5. MORPHINE [Concomitant]
     Active Substance: MORPHINE
  6. OXYCODONE HYDROCHLORIDE. [Concomitant]
     Active Substance: OXYCODONE HYDROCHLORIDE
  7. VICTOZA [Suspect]
     Active Substance: LIRAGLUTIDE
     Indication: DIABETES MELLITUS
     Dosage: 18MG/3ML-1.8 ML SUBCUTANEOUS DAILY EVERY MORNING
     Route: 065
     Dates: start: 201006, end: 201503
  8. LISINOPRIL. [Concomitant]
     Active Substance: LISINOPRIL
  9. AMLODIPINE BESYLATE. [Concomitant]
     Active Substance: AMLODIPINE BESYLATE
  10. PLAVIX [Concomitant]
     Active Substance: CLOPIDOGREL BISULFATE
  11. ISOSORBIDE MONONITRATE. [Concomitant]
     Active Substance: ISOSORBIDE MONONITRATE
  12. CARVEDILOL. [Concomitant]
     Active Substance: CARVEDILOL
  13. BYETTA [Suspect]
     Active Substance: EXENATIDE
     Indication: DIABETES MELLITUS
     Route: 065
     Dates: start: 2008
  14. NIASPAN [Concomitant]
     Active Substance: NIACIN
  15. METFORMIN [Concomitant]
     Active Substance: METFORMIN HYDROCHLORIDE
     Indication: DIABETES MELLITUS
  16. IRBESARTAN. [Concomitant]
     Active Substance: IRBESARTAN
  17. JANUVIA [Suspect]
     Active Substance: SITAGLIPTIN PHOSPHATE
     Indication: DIABETES MELLITUS
     Route: 065
     Dates: start: 200808
  18. GLIPIZIDE. [Concomitant]
     Active Substance: GLIPIZIDE
     Indication: DIABETES MELLITUS
  19. CARVEDILOL. [Concomitant]
     Active Substance: CARVEDILOL
  20. DULOXETINE. [Concomitant]
     Active Substance: DULOXETINE
  21. ALLOPURINOL. [Concomitant]
     Active Substance: ALLOPURINOL
  22. HYDROMORPHONE [Concomitant]
     Active Substance: HYDROMORPHONE
  23. GABAPENTIN. [Concomitant]
     Active Substance: GABAPENTIN
  24. ENOXAPARIN [Concomitant]
     Active Substance: ENOXAPARIN
  25. SPIRONOLACTONE. [Concomitant]
     Active Substance: SPIRONOLACTONE
  26. PROTONIX [Concomitant]
     Active Substance: PANTOPRAZOLE SODIUM
  27. CYMBALTA [Concomitant]
     Active Substance: DULOXETINE HYDROCHLORIDE
  28. FAMOTIDINE. [Concomitant]
     Active Substance: FAMOTIDINE

REACTIONS (1)
  - Pancreatic carcinoma metastatic [Fatal]

NARRATIVE: CASE EVENT DATE: 201511
